FAERS Safety Report 24214410 (Version 2)
Quarter: 2024Q3

REPORT INFORMATION
  Report Type: Spontaneous
  Country: MM (occurrence: MM)
  Receive Date: 20240815
  Receipt Date: 20240823
  Transmission Date: 20241017
  Serious: Yes (Life-Threatening, Other)
  Sender: GE HEALTHCARE
  Company Number: MM-GE HEALTHCARE-2024CSU009130

PATIENT
  Age: 32 Year
  Sex: Female

DRUGS (2)
  1. OMNIPAQUE [Suspect]
     Active Substance: IOHEXOL
     Indication: Computerised tomogram thorax
     Dosage: 60 ML, TOTAL
     Route: 042
     Dates: start: 20240703, end: 20240703
  2. APIXABAN [Concomitant]
     Active Substance: APIXABAN
     Indication: Pulmonary embolism
     Dosage: 9.5 MG, BID

REACTIONS (7)
  - Anal incontinence [Recovered/Resolved]
  - Urinary incontinence [Recovered/Resolved]
  - Oxygen saturation immeasurable [Recovered/Resolved]
  - Blood pressure immeasurable [Recovered/Resolved]
  - Pulse abnormal [Recovered/Resolved]
  - Peripheral coldness [Recovered/Resolved]
  - Chills [Recovered/Resolved]

NARRATIVE: CASE EVENT DATE: 20240703
